FAERS Safety Report 7798139-6 (Version None)
Quarter: 2011Q4

REPORT INFORMATION
  Report Type: 
  Country: None (occurrence: None)
  Receive Date: 20111005
  Receipt Date: 20110928
  Transmission Date: 20120403
  Serious: Yes (Disabling)
  Sender: FDA-Public Use
  Company Number: AU-NAPPMUNDI-GBR-2011-0008827

PATIENT

DRUGS (14)
  1. CALCITROL                          /00508501/ [Concomitant]
  2. OXYCODONE HYDROCHLORIDE [Suspect]
     Indication: PRODUCT USED FOR UNKNOWN INDICATION
  3. CODEINE SULFATE [Suspect]
     Indication: PRODUCT USED FOR UNKNOWN INDICATION
  4. ALLOPURINOL [Concomitant]
  5. ACETAZOLAMIDE [Concomitant]
  6. SODIUM BICARBONATE [Concomitant]
  7. RAMIPRIL [Concomitant]
  8. CELECOXIB [Concomitant]
  9. DOTHIAPINE [Concomitant]
  10. PREDNISOLONE [Concomitant]
  11. METOPROLOL TARTRATE [Concomitant]
  12. ASPIRIN [Concomitant]
  13. FLUNITRAZEPAM [Concomitant]
  14. FUROSEMIDE [Concomitant]

REACTIONS (2)
  - MACROCYTOSIS [None]
  - DEAFNESS [None]
